FAERS Safety Report 19410819 (Version 1)
Quarter: 2021Q2

REPORT INFORMATION
  Report Type: Spontaneous
  Country: US (occurrence: US)
  Receive Date: 20210614
  Receipt Date: 20210614
  Transmission Date: 20210717
  Serious: Yes (Other)
  Sender: FDA-Public Use
  Company Number: US-AMGEN-USASP2021088784

PATIENT
  Age: 83 Year
  Sex: Female

DRUGS (1)
  1. PROLIA [Suspect]
     Active Substance: DENOSUMAB
     Indication: OSTEOPOROSIS POSTMENOPAUSAL
     Dosage: 60 MILLIGRAM, Q6MO
     Route: 065
     Dates: start: 201003

REACTIONS (7)
  - Inappropriate schedule of product administration [Unknown]
  - Pelvic fracture [Recovered/Resolved]
  - Balance disorder [Unknown]
  - Calcinosis [Unknown]
  - Fall [Unknown]
  - Blood calcium increased [Unknown]
  - Dental care [Unknown]

NARRATIVE: CASE EVENT DATE: 2020
